FAERS Safety Report 5195878-0 (Version None)
Quarter: 2007Q1

REPORT INFORMATION
  Report Type: 
  Country: None (occurrence: None)
  Receive Date: 20070102
  Receipt Date: 20061221
  Transmission Date: 20070707
  Serious: Yes (Hospitalization)
  Sender: FDA-Public Use
  Company Number: AT-GLAXOSMITHKLINE-B0449804A

PATIENT
  Age: 81 Year
  Sex: Female
  Weight: 90 kg

DRUGS (12)
  1. ARIXTRA [Suspect]
     Indication: SURGERY
     Dosage: 2.5MG PER DAY
     Route: 065
     Dates: start: 20061130, end: 20061205
  2. LOVENOX [Concomitant]
     Indication: DRUG USE FOR UNKNOWN INDICATION
     Dosage: 80MG TWICE PER DAY
     Route: 065
  3. CEFAZOLIN [Concomitant]
     Indication: SYSTEMIC ANTIBACTERIAL THERAPY
     Dosage: 2TAB TWICE PER DAY
     Route: 048
  4. NOVALGIN [Concomitant]
     Dosage: 20DROP PER DAY
     Route: 048
     Dates: start: 20061124
  5. XEFO [Concomitant]
     Dosage: 8MG TWICE PER DAY
     Dates: start: 20061129
  6. ENALAPRIL MALEATE AND HYDROCHLOROTHIAZIDE [Concomitant]
     Dosage: 20MG SEE DOSAGE TEXT
  7. FURON [Concomitant]
     Dosage: 40MG TWICE PER DAY
  8. PANTOLOC [Concomitant]
     Dosage: 20MG PER DAY
  9. VENOSIN [Concomitant]
     Dosage: 50MG SEE DOSAGE TEXT
  10. INDOCID [Concomitant]
     Dosage: 50MG TWICE PER DAY
     Dates: start: 20061204
  11. MUCOBENE [Concomitant]
  12. ENALAPRIL MALEATE [Concomitant]
     Dosage: 20MG SEE DOSAGE TEXT

REACTIONS (3)
  - CHEST PAIN [None]
  - DYSPNOEA [None]
  - PULMONARY EMBOLISM [None]
